FAERS Safety Report 6260501-0 (Version None)
Quarter: 2009Q3

REPORT INFORMATION
  Report Type: 
  Country: None (occurrence: None)
  Receive Date: 20090708
  Receipt Date: 20090626
  Transmission Date: 20100115
  Serious: Yes (Death, Other)
  Sender: FDA-Public Use
  Company Number: JP-WYE-H09860309

PATIENT
  Sex: Female

DRUGS (8)
  1. ZOSYN [Suspect]
     Indication: PNEUMONIA
     Route: 041
     Dates: start: 20090513, end: 20090601
  2. PAZUCROSS [Concomitant]
     Indication: DRUG USE FOR UNKNOWN INDICATION
     Route: 042
     Dates: start: 20090514, end: 20090526
  3. GASTER [Concomitant]
     Indication: DRUG USE FOR UNKNOWN INDICATION
     Dates: start: 20090527, end: 20090531
  4. BAKTAR [Concomitant]
     Indication: DRUG USE FOR UNKNOWN INDICATION
     Route: 048
     Dates: start: 20090522, end: 20090609
  5. ITRACONAZOLE [Concomitant]
     Indication: DRUG USE FOR UNKNOWN INDICATION
     Dates: start: 20090522, end: 20090609
  6. TIENAM [Concomitant]
     Indication: PNEUMONIA
     Route: 042
     Dates: start: 20090513, end: 20090513
  7. OMEPRAL [Concomitant]
     Indication: PROPHYLAXIS AGAINST GASTROINTESTINAL ULCER
     Route: 042
     Dates: start: 20090515, end: 20090527
  8. OMEPRAL [Concomitant]
     Dates: start: 20090601, end: 20090617

REACTIONS (4)
  - CONCOMITANT DISEASE PROGRESSION [None]
  - RENAL FAILURE [None]
  - RESPIRATORY FAILURE [None]
  - RHABDOMYOLYSIS [None]
